FAERS Safety Report 9037029 (Version 1)
Quarter: 2013Q1

REPORT INFORMATION
  Report Type: Spontaneous
  Country: US (occurrence: None)
  Receive Date: 20130118
  Receipt Date: 20130118
  Transmission Date: 20140127
  Serious: Yes (Other)
  Sender: FDA-Public Use
  Company Number: None

PATIENT
  Age: 50 Year
  Sex: Female
  Weight: 86.18 kg

DRUGS (1)
  1. LATUDA [Suspect]
     Indication: BIPOLAR II DISORDER
     Dosage: DAILY DOSE ONCE
     Dates: start: 20121228, end: 20130111

REACTIONS (6)
  - Pruritus [None]
  - Rash [None]
  - Rash [None]
  - Urticaria [None]
  - Scratch [None]
  - Haemorrhage [None]
